FAERS Safety Report 13018488 (Version 2)
Quarter: 2016Q4

REPORT INFORMATION
  Report Type: Spontaneous
  Country: DE (occurrence: DE)
  Receive Date: 20161212
  Receipt Date: 20161227
  Transmission Date: 20170207
  Serious: Yes (Hospitalization)
  Sender: FDA-Public Use
  Company Number: DE-JNJFOC-20161207046

PATIENT
  Age: 3 Decade
  Sex: Male
  Weight: 71 kg

DRUGS (3)
  1. REMICADE [Suspect]
     Active Substance: INFLIXIMAB
     Indication: COLITIS ULCERATIVE
     Route: 042
     Dates: start: 20150923
  2. REMICADE [Suspect]
     Active Substance: INFLIXIMAB
     Indication: COLITIS ULCERATIVE
     Route: 042
     Dates: start: 20160701
  3. REMICADE [Suspect]
     Active Substance: INFLIXIMAB
     Indication: COLITIS ULCERATIVE
     Route: 042
     Dates: start: 201510

REACTIONS (7)
  - Acute prerenal failure [Recovered/Resolved]
  - Splenomegaly [Recovered/Resolved]
  - Febrile infection [Recovered/Resolved]
  - Epstein-Barr virus infection [Not Recovered/Not Resolved]
  - Herpes simplex [Unknown]
  - Immunosuppression [Recovered/Resolved]
  - Eosinophilic oesophagitis [Recovered/Resolved]

NARRATIVE: CASE EVENT DATE: 2016
